FAERS Safety Report 16717278 (Version 1)
Quarter: 2019Q3

REPORT INFORMATION
  Report Type: Spontaneous
  Country: CA (occurrence: CA)
  Receive Date: 20190819
  Receipt Date: 20190819
  Transmission Date: 20191005
  Serious: Yes (Hospitalization)
  Sender: FDA-Public Use
  Company Number: CA-ALLERGAN-1933552US

PATIENT
  Sex: Male
  Weight: 58 kg

DRUGS (2)
  1. CITALOPRAM HYDROBROMIDE - BP [Suspect]
     Active Substance: CITALOPRAM HYDROBROMIDE
     Indication: MAJOR DEPRESSION
     Dosage: 10 MG, QD
     Route: 048
  2. CITALOPRAM HYDROBROMIDE - BP [Suspect]
     Active Substance: CITALOPRAM HYDROBROMIDE
     Dosage: 5 MG, QD
     Route: 048

REACTIONS (7)
  - Rectal haemorrhage [Unknown]
  - Red blood cells urine positive [Unknown]
  - Haematuria [Unknown]
  - Abdominal pain lower [Unknown]
  - Haemorrhage urinary tract [Unknown]
  - Toxicity to various agents [Unknown]
  - Product administered to patient of inappropriate age [Unknown]
